FAERS Safety Report 6428350-8 (Version None)
Quarter: 2009Q4

REPORT INFORMATION
  Report Type: 
  Country: None (occurrence: None)
  Receive Date: 20091102
  Receipt Date: 20091022
  Transmission Date: 20100525
  Serious: Yes (Hospitalization)
  Sender: FDA-Public Use
  Company Number: GXKR2009BR11611

PATIENT
  Age: 65 Year
  Sex: Female

DRUGS (1)
  1. ACETYLSALICYLIC ACID SRT [Suspect]
     Indication: CEREBROVASCULAR ACCIDENT PROPHYLAXIS

REACTIONS (8)
  - AGITATION [None]
  - ANEURYSM [None]
  - CEREBELLAR HAEMORRHAGE [None]
  - CEREBRAL ARTERIOSCLEROSIS [None]
  - CEREBRAL VENTRICLE DILATATION [None]
  - HYDROCEPHALUS [None]
  - SOMNOLENCE [None]
  - SUBARACHNOID HAEMORRHAGE [None]
